FAERS Safety Report 20189947 (Version 1)
Quarter: 2021Q4

REPORT INFORMATION
  Report Type: Report from Study
  Country: KR (occurrence: None)
  Receive Date: 20211215
  Receipt Date: 20211215
  Transmission Date: 20220303
  Serious: Yes (Hospitalization)
  Sender: FDA-Public Use
  Company Number: KR-Eisai Medical Research-EC-2021-104870

PATIENT
  Age: 51 Year
  Sex: Male

DRUGS (10)
  1. LENVIMA [Suspect]
     Active Substance: LENVATINIB
     Indication: Hepatocellular carcinoma
     Route: 048
     Dates: start: 20190812, end: 20190817
  2. LENVIMA [Suspect]
     Active Substance: LENVATINIB
     Route: 048
     Dates: start: 20190822, end: 20190902
  3. LENVIMA [Suspect]
     Active Substance: LENVATINIB
     Route: 048
     Dates: start: 20190903, end: 20191008
  4. LENVIMA [Suspect]
     Active Substance: LENVATINIB
     Route: 048
     Dates: start: 20191013, end: 20191211
  5. AMLODIPINE CAMSYLATE [Concomitant]
     Active Substance: AMLODIPINE CAMSYLATE
     Indication: Hypertension
     Route: 048
     Dates: start: 20190223
  6. HEPACID GRAN [Concomitant]
     Indication: Chronic hepatitis
     Dosage: 3 PACK
     Route: 048
     Dates: start: 20190217
  7. URSODIOL [Concomitant]
     Active Substance: URSODIOL
     Indication: Chronic hepatitis
     Route: 048
     Dates: start: 20190413
  8. DIETARY SUPPLEMENT\HERBALS\MILK THISTLE [Concomitant]
     Active Substance: DIETARY SUPPLEMENT\HERBALS\MILK THISTLE
     Indication: Chronic hepatitis
     Route: 048
     Dates: start: 20190413
  9. ALMAGEL [Concomitant]
     Indication: Prophylaxis
     Dosage: 3 PACK
     Route: 048
     Dates: start: 20190615
  10. VIREAD [Concomitant]
     Active Substance: TENOFOVIR DISOPROXIL FUMARATE
     Indication: Chronic hepatitis
     Route: 048
     Dates: start: 20190214

REACTIONS (1)
  - Hepatic encephalopathy [Recovered/Resolved]

NARRATIVE: CASE EVENT DATE: 20190818
